FAERS Safety Report 5267349-4 (Version None)
Quarter: 2007Q1

REPORT INFORMATION
  Report Type: 
  Country: None (occurrence: None)
  Receive Date: 20070316
  Receipt Date: 20070308
  Transmission Date: 20070707
  Serious: Yes (Hospitalization)
  Sender: FDA-Public Use
  Company Number: JP-MERCK-0703USA02198

PATIENT
  Age: 80 Year
  Sex: Female

DRUGS (5)
  1. FOSAMAX [Suspect]
     Route: 048
     Dates: start: 20060925, end: 20070220
  2. SENNOSIDES [Concomitant]
     Route: 048
  3. MAGNESIUM OXIDE [Concomitant]
     Route: 048
  4. CALBLOCK [Concomitant]
     Route: 048
  5. ALFACALCIDOL [Concomitant]
     Route: 048

REACTIONS (2)
  - FEELING ABNORMAL [None]
  - VOMITING [None]
